FAERS Safety Report 4932438-8 (Version None)
Quarter: 2006Q1

REPORT INFORMATION
  Report Type: 
  Country: None (occurrence: None)
  Receive Date: 20060301
  Receipt Date: 20060216
  Transmission Date: 20060701
  Serious: Yes (Hospitalization, Disabling)
  Sender: FDA-Public Use
  Company Number: 2006026653

PATIENT
  Age: 3 Year
  Sex: Male

DRUGS (14)
  1. GENOTROPIN [Suspect]
     Indication: RENAL FAILURE CHRONIC
     Dosage: 4IU (WEEKLY (6 INJ)), SUBCUTANEOUS; SEE IMAGE
     Route: 058
     Dates: start: 19980114, end: 19990413
  2. GENOTROPIN [Suspect]
     Indication: RENAL FAILURE CHRONIC
     Dosage: 4IU (WEEKLY (6 INJ)), SUBCUTANEOUS; SEE IMAGE
     Route: 058
     Dates: start: 19990414, end: 19990629
  3. GENOTROPIN [Suspect]
     Indication: RENAL FAILURE CHRONIC
     Dosage: 4IU (WEEKLY (6 INJ)), SUBCUTANEOUS; SEE IMAGE
     Route: 058
     Dates: start: 19990630, end: 20000912
  4. GENOTROPIN [Suspect]
     Indication: RENAL FAILURE CHRONIC
     Dosage: 4IU (WEEKLY (6 INJ)), SUBCUTANEOUS; SEE IMAGE
     Route: 058
     Dates: start: 20000913, end: 20020813
  5. GENOTROPIN [Suspect]
     Indication: RENAL FAILURE CHRONIC
     Dosage: 4IU (WEEKLY (6 INJ)), SUBCUTANEOUS; SEE IMAGE
     Route: 058
     Dates: start: 20020814, end: 20031209
  6. GENOTROPIN [Suspect]
     Indication: RENAL FAILURE CHRONIC
     Dosage: 4IU (WEEKLY (6 INJ)), SUBCUTANEOUS; SEE IMAGE
     Route: 058
     Dates: start: 20031210
  7. INCREMIN (CYANOCOBALAMIN, LYSINE HYDROCHLORIDE, PYRIDOXINE HYDROCHLORI [Concomitant]
  8. RIZABEN (TRANILAST) [Concomitant]
  9. ALLOPURINOL [Concomitant]
  10. SODIUM CHLORIDE 0.9% [Concomitant]
  11. LASIX [Concomitant]
  12. CALCIUM CARBONATE (CALCIUM CARBONATE) [Concomitant]
  13. EPOGEN [Concomitant]
  14. ALFACALCIDOL            (ALFACALCIDOL) [Concomitant]

REACTIONS (2)
  - CONDITION AGGRAVATED [None]
  - HYPERPARATHYROIDISM SECONDARY [None]
